FAERS Safety Report 7371807-6 (Version None)
Quarter: 2011Q1

REPORT INFORMATION
  Report Type: 
  Country: None (occurrence: None)
  Receive Date: 20110324
  Receipt Date: 20110317
  Transmission Date: 20110831
  Serious: Yes (Other)
  Sender: FDA-Public Use
  Company Number: CN-ROCHE-766003

PATIENT
  Age: 60 Year
  Sex: Female
  Weight: 55 kg

DRUGS (4)
  1. CELLCEPT [Suspect]
     Indication: RENAL TRANSPLANT
     Route: 048
     Dates: start: 20051129, end: 20080101
  2. CELLCEPT [Suspect]
     Route: 048
     Dates: start: 20080101
  3. SANDIMMUNE [Concomitant]
     Indication: RENAL TRANSPLANT
     Route: 048
     Dates: start: 20051129, end: 20080101
  4. SANDIMMUNE [Concomitant]
     Dosage: 75MG ON THE MORNING, 50MG ON THE EVENING
     Route: 048
     Dates: start: 20080101

REACTIONS (3)
  - NASOPHARYNGITIS [None]
  - OSTEONECROSIS [None]
  - PYREXIA [None]
